FAERS Safety Report 18840198 (Version 1)
Quarter: 2021Q1

REPORT INFORMATION
  Report Type: Report from Study
  Country: None (occurrence: US)
  Receive Date: 20210204
  Receipt Date: 20210204
  Transmission Date: 20210419
  Serious: Yes (Hospitalization)
  Sender: FDA-Public Use
  Company Number: US-ABBVIE-20K-163-3637463-00

PATIENT
  Sex: Male

DRUGS (3)
  1. HUMIRA [Suspect]
     Active Substance: ADALIMUMAB
     Dosage: DAY 15
     Route: 058
     Dates: start: 20201006, end: 20201006
  2. HUMIRA [Suspect]
     Active Substance: ADALIMUMAB
     Indication: CROHN^S DISEASE
     Dosage: DAY 1
     Route: 058
     Dates: start: 20200831, end: 20200831
  3. HUMIRA [Suspect]
     Active Substance: ADALIMUMAB
     Indication: CROHN^S DISEASE
     Route: 058
     Dates: start: 20201021

REACTIONS (14)
  - Weight decreased [Not Recovered/Not Resolved]
  - Hyperphagia [Recovering/Resolving]
  - Abdominal pain [Not Recovered/Not Resolved]
  - Back pain [Recovering/Resolving]
  - Vomiting [Unknown]
  - Abnormal faeces [Unknown]
  - Musculoskeletal stiffness [Recovering/Resolving]
  - Diarrhoea [Recovering/Resolving]
  - Constipation [Unknown]
  - Crohn^s disease [Recovering/Resolving]
  - Pyrexia [Not Recovered/Not Resolved]
  - Abdominal discomfort [Recovering/Resolving]
  - Abdominal distension [Recovering/Resolving]
  - Nausea [Unknown]

NARRATIVE: CASE EVENT DATE: 2020
